FAERS Safety Report 6266840-1 (Version None)
Quarter: 2009Q3

REPORT INFORMATION
  Report Type: 
  Country: None (occurrence: None)
  Receive Date: 20090714
  Receipt Date: 20090709
  Transmission Date: 20100115
  Serious: Yes (Hospitalization)
  Sender: FDA-Public Use
  Company Number: FR-JNJFOC-20090702878

PATIENT
  Age: 89 Year
  Sex: Male

DRUGS (19)
  1. OFLOCET [Suspect]
     Indication: LOWER RESPIRATORY TRACT INFECTION BACTERIAL
     Route: 048
  2. CEFTRIAXONE [Concomitant]
     Indication: LOWER RESPIRATORY TRACT INFECTION BACTERIAL
     Route: 065
  3. GLUCIDION [Concomitant]
     Route: 065
  4. CALCIPARINE [Concomitant]
     Route: 065
  5. SPECIAFOLDINE [Concomitant]
     Route: 048
  6. FORADIL [Concomitant]
     Route: 055
  7. CARDENSIEL [Concomitant]
     Route: 048
  8. DIFFU K [Concomitant]
     Route: 048
  9. NEXIUM [Concomitant]
     Route: 048
  10. SINGULAIR [Concomitant]
     Route: 048
  11. XATRAL [Concomitant]
     Route: 048
  12. LEVOTHYROX [Concomitant]
     Route: 048
  13. FUROSEMIDE [Concomitant]
     Route: 048
  14. VENTOLIN [Concomitant]
     Route: 055
  15. BISOPROLOL FUMARATE [Concomitant]
     Route: 048
  16. KARDEGIC [Concomitant]
     Route: 065
  17. IPRATROPIUM BROMIDE [Concomitant]
     Route: 065
  18. VOLTAREN [Concomitant]
     Route: 065
  19. ZOPICLONE [Concomitant]
     Route: 048

REACTIONS (1)
  - CHOLESTASIS [None]
